FAERS Safety Report 5630938-9 (Version None)
Quarter: 2008Q1

REPORT INFORMATION
  Report Type: 
  Country: None (occurrence: None)
  Receive Date: 20080219
  Receipt Date: 20080212
  Transmission Date: 20080703
  Serious: Yes (Hospitalization)
  Sender: FDA-Public Use
  Company Number: FR-AVENTIS-200810593FR

PATIENT
  Age: 86 Year
  Sex: Female

DRUGS (13)
  1. LOVENOX [Suspect]
     Route: 058
     Dates: start: 20070825, end: 20070827
  2. OXACILLIN [Suspect]
     Route: 048
     Dates: start: 20070826, end: 20070828
  3. ZALDIAR [Suspect]
     Indication: PAIN
     Route: 048
     Dates: start: 20070802, end: 20070825
  4. HYTACAND [Suspect]
     Indication: ESSENTIAL HYPERTENSION
     Route: 048
     Dates: end: 20070826
  5. ARICEPT [Suspect]
     Route: 048
     Dates: end: 20070829
  6. ORBENINE [Concomitant]
     Indication: SUPERINFECTION
     Route: 048
     Dates: start: 20070820, end: 20070824
  7. ASPEGIC 1000 [Concomitant]
     Route: 048
  8. LEVOTHYROX [Concomitant]
     Indication: HYPOTHYROIDISM
     Route: 048
  9. LEVOTHYROX [Concomitant]
     Route: 048
  10. ATHYMIL [Concomitant]
     Route: 048
  11. NOLVADEX [Concomitant]
     Route: 048
  12. XYZALL                             /01530201/ [Concomitant]
     Route: 048
     Dates: start: 20070827, end: 20070904
  13. ATACAND [Concomitant]
     Indication: ESSENTIAL HYPERTENSION
     Route: 048
     Dates: start: 20070827, end: 20070828

REACTIONS (1)
  - NEPHRITIS [None]
